FAERS Safety Report 7385828-0 (Version None)
Quarter: 2011Q1

REPORT INFORMATION
  Report Type: 
  Country: None (occurrence: None)
  Receive Date: 20110331
  Receipt Date: 20110328
  Transmission Date: 20110831
  Serious: No
  Sender: FDA-Public Use
  Company Number: US-PFIZER INC-2011068641

PATIENT
  Sex: Male
  Weight: 99.79 kg

DRUGS (2)
  1. TESTOSTERONE [Interacting]
     Indication: BLOOD TESTOSTERONE DECREASED
     Dosage: 2 DF, 1X/DAY
     Route: 062
     Dates: start: 20110302
  2. VIAGRA [Suspect]

REACTIONS (2)
  - DRUG INTERACTION [None]
  - DRUG INEFFECTIVE [None]
